FAERS Safety Report 24019609 (Version 1)
Quarter: 2024Q2

REPORT INFORMATION
  Report Type: Spontaneous
  Country: US (occurrence: US)
  Receive Date: 20240627
  Receipt Date: 20240627
  Transmission Date: 20240716
  Serious: Yes (Life-Threatening, Other)
  Sender: FDA-Public Use
  Company Number: US-AMGEN-USASP2024123932

PATIENT
  Age: 82 Year
  Sex: Female

DRUGS (1)
  1. PREDNISONE [Suspect]
     Active Substance: PREDNISONE
     Indication: Dermatomyositis
     Dosage: UNK
     Route: 065

REACTIONS (9)
  - Encephalopathy [Unknown]
  - Pancytopenia [Unknown]
  - Hypotension [Unknown]
  - Hypothermia [Unknown]
  - Hepatotoxicity [Unknown]
  - Bacterial myositis [Unknown]
  - General physical health deterioration [Unknown]
  - Cough [Unknown]
  - Lung opacity [Recovering/Resolving]
